FAERS Safety Report 15855374 (Version 4)
Quarter: 2022Q1

REPORT INFORMATION
  Report Type: Spontaneous
  Country: US (occurrence: US)
  Receive Date: 20190122
  Receipt Date: 20220315
  Transmission Date: 20220423
  Serious: No
  Sender: FDA-Public Use
  Company Number: US-PFIZER INC-2019028379

PATIENT
  Age: 52 Year
  Sex: Female

DRUGS (1)
  1. GENOTROPIN [Suspect]
     Active Substance: SOMATROPIN
     Dosage: 0.3 MG, DAILY

REACTIONS (13)
  - Blood cholesterol increased [Unknown]
  - High density lipoprotein increased [Unknown]
  - Low density lipoprotein increased [Unknown]
  - Blood triglycerides increased [Unknown]
  - Non-high-density lipoprotein cholesterol increased [Unknown]
  - Blood growth hormone increased [Unknown]
  - Malaise [Unknown]
  - Hyperhidrosis [Unknown]
  - Hot flush [Unknown]
  - Blood 25-hydroxycholecalciferol decreased [Unknown]
  - Insulin-like growth factor decreased [Unknown]
  - Dehydroepiandrosterone decreased [Unknown]
  - Device use issue [Unknown]
